FAERS Safety Report 5633828-0 (Version None)
Quarter: 2008Q1

REPORT INFORMATION
  Report Type: 
  Country: None (occurrence: None)
  Receive Date: 20080219
  Receipt Date: 20080201
  Transmission Date: 20080703
  Serious: Yes (Hospitalization)
  Sender: FDA-Public Use
  Company Number: DSA_31406_2008

PATIENT
  Sex: Female

DRUGS (2)
  1. LORAZEPAM [Suspect]
     Dosage: (5 MG 1X. ORAL
     Route: 048
     Dates: start: 20080131, end: 20080131
  2. EQUILIBRIN (EQUILIBRIN - AMITRIPTYLINOXIDE) 30 MG [Suspect]
     Dosage: (600 MG 1X. ORAL
     Route: 048
     Dates: start: 20080131, end: 20080131

REACTIONS (3)
  - INTENTIONAL OVERDOSE [None]
  - SUICIDE ATTEMPT [None]
  - TACHYCARDIA [None]
